FAERS Safety Report 5823728-5 (Version None)
Quarter: 2008Q3

REPORT INFORMATION
  Report Type: 
  Country: None (occurrence: None)
  Receive Date: 20080725
  Receipt Date: 20080714
  Transmission Date: 20090109
  Serious: Yes (Hospitalization)
  Sender: FDA-Public Use
  Company Number: JP-PFIZER INC-2008051553

PATIENT
  Sex: Male

DRUGS (2)
  1. LIPITOR [Suspect]
     Indication: HYPERCHOLESTEROLAEMIA
     Route: 048
     Dates: start: 20080601, end: 20080611
  2. AMLODIN [Concomitant]
     Route: 048
     Dates: start: 20060626, end: 20080611

REACTIONS (1)
  - STEVENS-JOHNSON SYNDROME [None]
